FAERS Safety Report 11140733 (Version 1)
Quarter: 2015Q2

REPORT INFORMATION
  Report Type: Spontaneous
  Country: US (occurrence: US)
  Receive Date: 20150525
  Receipt Date: 20150525
  Transmission Date: 20150821
  Serious: No
  Sender: FDA-Public Use
  Company Number: US-JNJFOC-20140902052

PATIENT
  Sex: Male

DRUGS (1)
  1. RISPERDAL CONSTA [Suspect]
     Active Substance: RISPERIDONE
     Indication: SCHIZOPHRENIA
     Route: 030

REACTIONS (8)
  - Wrong technique in drug usage process [Unknown]
  - Medical device complication [Unknown]
  - Drug administration error [Unknown]
  - Device malfunction [Unknown]
  - Treatment noncompliance [Unknown]
  - Drug ineffective [Unknown]
  - Syringe issue [Unknown]
  - Drug dose omission [Unknown]
